FAERS Safety Report 16492709 (Version 4)
Quarter: 2019Q4

REPORT INFORMATION
  Report Type: Report from Study
  Country: US (occurrence: US)
  Receive Date: 20190628
  Receipt Date: 20191202
  Transmission Date: 20200122
  Serious: Yes (Other)
  Sender: FDA-Public Use
  Company Number: PHEH2019US026818

PATIENT
  Age: 15 Year
  Sex: Female

DRUGS (1)
  1. GILENYA [Suspect]
     Active Substance: FINGOLIMOD HYDROCHLORIDE
     Indication: MULTIPLE SCLEROSIS
     Dosage: 0.5 MG, QD
     Route: 048
     Dates: start: 20190607

REACTIONS (7)
  - Faeces discoloured [Not Recovered/Not Resolved]
  - Oral pain [Not Recovered/Not Resolved]
  - Epistaxis [Not Recovered/Not Resolved]
  - Herpes virus infection [Not Recovered/Not Resolved]
  - Menstruation irregular [Not Recovered/Not Resolved]
  - Diarrhoea [Not Recovered/Not Resolved]
  - Mouth haemorrhage [Recovered/Resolved]

NARRATIVE: CASE EVENT DATE: 20190607
